FAERS Safety Report 12319095 (Version 11)
Quarter: 2018Q1

REPORT INFORMATION
  Report Type: Report from Study
  Country: CA (occurrence: CA)
  Receive Date: 20160429
  Receipt Date: 20180209
  Transmission Date: 20180508
  Serious: Yes (Other)
  Sender: FDA-Public Use
  Company Number: CA-INCYTE CORPORATION-2016IN002464

PATIENT

DRUGS (9)
  1. BABY ASPIRIN [Concomitant]
     Active Substance: ASPIRIN
     Indication: PRODUCT USED FOR UNKNOWN INDICATION
     Dosage: UNK UNK, QD
  2. VITAMIN D [Concomitant]
     Active Substance: CHOLECALCIFEROL
     Indication: PRODUCT USED FOR UNKNOWN INDICATION
     Dosage: UNK UNK, QD
  3. SYMBICORT [Concomitant]
     Active Substance: BUDESONIDE\FORMOTEROL FUMARATE DIHYDRATE
     Indication: PRODUCT USED FOR UNKNOWN INDICATION
     Dosage: 1 DF, QD (1 PUFF, DAILY)
     Route: 065
  4. JAKAVI [Suspect]
     Active Substance: RUXOLITINIB
     Dosage: 15 MG, BID
     Route: 048
  5. JAKAVI [Suspect]
     Active Substance: RUXOLITINIB
     Indication: MYELOFIBROSIS
     Dosage: 20 MG, BID
     Route: 048
     Dates: start: 20160409
  6. JAKAVI [Suspect]
     Active Substance: RUXOLITINIB
     Dosage: 15 MG, BID
     Route: 048
  7. TRIAMZIDE [Concomitant]
     Indication: PRODUCT USED FOR UNKNOWN INDICATION
     Dosage: UNK UNK, PRN
  8. JAKAVI [Suspect]
     Active Substance: RUXOLITINIB
     Dosage: 35 MG, (20 MG IN THE MORNING AND 15 MG AT NIGHT)
     Route: 048
  9. JAKAVI [Suspect]
     Active Substance: RUXOLITINIB
     Dosage: 35 MG, (15MG QAM AND 20 MG QPM)
     Route: 048

REACTIONS (28)
  - Dysgeusia [Unknown]
  - Headache [Unknown]
  - Weight increased [Unknown]
  - Frustration tolerance decreased [Unknown]
  - Anaemia [Unknown]
  - Eye pain [Unknown]
  - Burning sensation [Unknown]
  - Arthralgia [Unknown]
  - Bone pain [Unknown]
  - Muscle spasms [Unknown]
  - Generalised oedema [Unknown]
  - Fatigue [Unknown]
  - Increased appetite [Unknown]
  - Peripheral swelling [Unknown]
  - Swelling [Unknown]
  - Diverticulitis [Unknown]
  - Asthenia [Unknown]
  - Blood sodium decreased [Unknown]
  - Pneumonia [Unknown]
  - Haemoglobin decreased [Unknown]
  - Food craving [Unknown]
  - Muscular weakness [Unknown]
  - Corneal neovascularisation [Unknown]
  - Fluid retention [Unknown]
  - Platelet count increased [Recovering/Resolving]
  - Mood altered [Unknown]
  - Skin tightness [Unknown]
  - Dizziness [Unknown]
